FAERS Safety Report 5815527-5 (Version None)
Quarter: 2008Q3

REPORT INFORMATION
  Report Type: 
  Country: None (occurrence: None)
  Receive Date: 20080716
  Receipt Date: 20080701
  Transmission Date: 20090109
  Serious: Yes (Other)
  Sender: FDA-Public Use
  Company Number: 8029445

PATIENT
  Age: 24 Year
  Sex: Female

DRUGS (8)
  1. KEPPRA [Suspect]
     Indication: EPILEPSY
     Dosage: 1000 MG /D PO
     Route: 048
     Dates: start: 20050101, end: 20070828
  2. KEPPRA [Suspect]
     Indication: EPILEPSY
     Dosage: 1500 MG /D PO
     Route: 048
     Dates: start: 20070828
  3. FOLIC ACID [Concomitant]
  4. VITAMINS NOS [Concomitant]
  5. SINGULAIR [Concomitant]
  6. KEFLEX /00145501/ [Concomitant]
  7. LEVAQUIN [Concomitant]
  8. CEFEPIME [Concomitant]

REACTIONS (8)
  - DRUG EXPOSURE DURING PREGNANCY [None]
  - GRAND MAL CONVULSION [None]
  - NEPHROLITHIASIS [None]
  - POST PROCEDURAL COMPLICATION [None]
  - PREGNANCY [None]
  - PYELONEPHRITIS [None]
  - STENT OCCLUSION [None]
  - URINARY TRACT INFECTION PSEUDOMONAL [None]
